FAERS Safety Report 8494929-5 (Version None)
Quarter: 2012Q2

REPORT INFORMATION
  Report Type: 
  Country: None (occurrence: None)
  Receive Date: 20120628
  Receipt Date: 20120612
  Transmission Date: 20120825
  Serious: Yes (Hospitalization, Other)
  Sender: FDA-Public Use
  Company Number: CIP11000505

PATIENT
  Age: 77 Year
  Sex: Female

DRUGS (34)
  1. FOSAMAX [Suspect]
     Dosage: 70 MG ONCE WEEKLY, ORAL ; 70 MG ONCE WEEK, ORAL
     Route: 048
     Dates: start: 20090319, end: 20100101
  2. FOSAMAX [Suspect]
     Dosage: 70 MG ONCE WEEKLY, ORAL ; 70 MG ONCE WEEK, ORAL
     Route: 048
     Dates: start: 20011011, end: 20100101
  3. CALCIUM +VIT D (CALCIUM, COLECALCIFEROL) [Concomitant]
  4. DOXAZOSIN MESYLATE (DOXAZOSIN MESILATE) [Concomitant]
  5. MIRTAZAPINE [Concomitant]
  6. FEXOFENADINE HCL [Concomitant]
  7. FISH OIL (FISH OIL) [Concomitant]
  8. VITAMINS NOS (VITAMINS NOS) [Concomitant]
  9. NIACIN [Concomitant]
  10. PRILOSEC [Concomitant]
  11. ZANTAC [Concomitant]
  12. POTASSIUM CHLORIDE [Concomitant]
  13. TYLENOL (CAPLET) [Concomitant]
  14. CIPROFLOXACIN [Concomitant]
  15. TRIAMTERENE AND HYDROCHLOROTHIAZIDE (HYDROCHLOROTHIAZIDE, TRIAMTERENE) [Concomitant]
  16. CADUET [Concomitant]
  17. DETROL LA [Concomitant]
  18. ASPIRIN [Concomitant]
  19. FORTEO [Concomitant]
  20. PLENDIL [Concomitant]
  21. TRAZODONE HCL [Concomitant]
  22. BISOPROLOL FUMARATE [Concomitant]
  23. MULTIVITAMIN /00097801/ (ASCORBIC ACID, CALCIUM PANTOTHENATE, ERGOCALC [Concomitant]
  24. ACTONEL [Suspect]
     Indication: OSTEOPOROSIS
     Dosage: 35 MG, ONCE WEEKLY, ORAL; 35 MG ONCE WEEKLY  (4 DOSES), ORAL
     Route: 048
     Dates: start: 20070301, end: 20090301
  25. ACTONEL [Suspect]
     Indication: OSTEOPOROSIS
     Dosage: 35 MG, ONCE WEEKLY, ORAL; 35 MG ONCE WEEKLY  (4 DOSES), ORAL
     Route: 048
     Dates: start: 20100304, end: 20100301
  26. ACTONEL WITH CALCIUM (COPACKAGED) [Suspect]
     Dosage: 35MG/500MG, ORAL ; 35/1250 MG, ORAL
     Route: 048
     Dates: start: 20070111, end: 20081015
  27. ACTONEL WITH CALCIUM (COPACKAGED) [Suspect]
     Dosage: 35MG/500MG, ORAL ; 35/1250 MG, ORAL
     Route: 048
     Dates: start: 20090220, end: 20100413
  28. NYSTATIN [Concomitant]
  29. LEVOXYL [Concomitant]
  30. ZYRTEC [Concomitant]
  31. SULFAMETHOXAZOLE AND TRIMETHOPRIM [Concomitant]
  32. MELOXICAM [Concomitant]
  33. SIMVASTATIN [Concomitant]
  34. MACRODANTIN [Concomitant]

REACTIONS (15)
  - GROIN PAIN [None]
  - ANAEMIA POSTOPERATIVE [None]
  - ARTHRALGIA [None]
  - FEMUR FRACTURE [None]
  - PAIN IN EXTREMITY [None]
  - PUBIS FRACTURE [None]
  - FRACTURE DISPLACEMENT [None]
  - BURSITIS [None]
  - PAIN [None]
  - STRESS FRACTURE [None]
  - GAIT DISTURBANCE [None]
  - TENDERNESS [None]
  - PATHOLOGICAL FRACTURE [None]
  - MUSCLE ATROPHY [None]
  - BONE DISORDER [None]
